FAERS Safety Report 22040268 (Version 2)
Quarter: 2023Q1

REPORT INFORMATION
  Report Type: Spontaneous
  Country: US (occurrence: US)
  Receive Date: 20230227
  Receipt Date: 20230321
  Transmission Date: 20230417
  Serious: Yes (Other)
  Sender: FDA-Public Use
  Company Number: US-JNJFOC-20230240722

PATIENT
  Age: 7 Decade
  Sex: Male
  Weight: 76.272 kg

DRUGS (7)
  1. STELARA [Suspect]
     Active Substance: USTEKINUMAB
     Indication: Colitis ulcerative
     Dosage: (380 MLS)
     Route: 040
     Dates: start: 20221213
  2. STELARA [Suspect]
     Active Substance: USTEKINUMAB
     Dosage: 90.00 MG/ML
     Route: 058
     Dates: start: 20230207
  3. PREDNISONE [Concomitant]
     Active Substance: PREDNISONE
     Dosage: 07- FEB -2023
     Dates: start: 20230207
  4. PROGRAF [Concomitant]
     Active Substance: TACROLIMUS
     Indication: Product used for unknown indication
  5. CELLCEPT [Concomitant]
     Active Substance: MYCOPHENOLATE MOFETIL
     Indication: Product used for unknown indication
     Dosage: FREQUENCY TIME -2 AS REQUIRED
  6. LIALDA [Concomitant]
     Active Substance: MESALAMINE
     Indication: Product used for unknown indication
  7. AMLODIPINE [Concomitant]
     Active Substance: AMLODIPINE BESYLATE
     Indication: Product used for unknown indication

REACTIONS (2)
  - Colitis ulcerative [Unknown]
  - Drug ineffective [Unknown]
